FAERS Safety Report 7430561-X (Version None)
Quarter: 2011Q2

REPORT INFORMATION
  Report Type: 
  Country: None (occurrence: None)
  Receive Date: 20110419
  Receipt Date: 20110419
  Transmission Date: 20111010
  Serious: No
  Sender: FDA-Public Use
  Company Number: None

PATIENT
  Sex: Female
  Weight: 76.2043 kg

DRUGS (1)
  1. TOPIRAMATE [Suspect]
     Indication: MIGRAINE
     Dosage: 50MG 2X A DAY PO
     Route: 048
     Dates: start: 20110315, end: 20110416

REACTIONS (3)
  - RASH PRURITIC [None]
  - ALOPECIA [None]
  - PAIN [None]
